FAERS Safety Report 17883845 (Version 1)
Quarter: 2020Q2

REPORT INFORMATION
  Report Type: Spontaneous
  Country: US (occurrence: US)
  Receive Date: 20200611
  Receipt Date: 20200611
  Transmission Date: 20200714
  Serious: No
  Sender: FDA-Public Use
  Company Number: US-LUPIN PHARMACEUTICALS INC.-2019-04633

PATIENT
  Age: 83 Year
  Sex: Female
  Weight: 61.22 kg

DRUGS (2)
  1. TEMAZEPAM CAPSULES, USP, 15 MG [Suspect]
     Active Substance: TEMAZEPAM
     Dosage: UNK, REASTARTED
     Route: 065
  2. TEMAZEPAM CAPSULES, USP, 15 MG [Suspect]
     Active Substance: TEMAZEPAM
     Indication: INSOMNIA
     Dosage: 1 DOSAGE FORM, QD
     Route: 048
     Dates: start: 201906

REACTIONS (3)
  - Feeling jittery [Recovered/Resolved]
  - Drug ineffective [Unknown]
  - Nightmare [Recovered/Resolved]

NARRATIVE: CASE EVENT DATE: 201906
